FAERS Safety Report 19093593 (Version 1)
Quarter: 2021Q2

REPORT INFORMATION
  Report Type: Spontaneous
  Country: US (occurrence: US)
  Receive Date: 20210405
  Receipt Date: 20210405
  Transmission Date: 20210717
  Serious: No
  Sender: FDA-Public Use
  Company Number: US-SA-2021SA111560

PATIENT
  Age: 28 Year
  Sex: Male

DRUGS (1)
  1. DUPIXENT [Suspect]
     Active Substance: DUPILUMAB
     Route: 048
     Dates: start: 20201130

REACTIONS (3)
  - Product use issue [Unknown]
  - Incorrect route of product administration [Unknown]
  - Rash [Unknown]

NARRATIVE: CASE EVENT DATE: 20201130
